FAERS Safety Report 21951823 (Version 1)
Quarter: 2023Q1

REPORT INFORMATION
  Report Type: Spontaneous
  Country: SI (occurrence: None)
  Receive Date: 20230203
  Receipt Date: 20230203
  Transmission Date: 20230418
  Serious: Yes (Other)
  Sender: FDA-Public Use
  Company Number: 2023A027819

PATIENT
  Age: 82 Year
  Sex: Female

DRUGS (11)
  1. QUETIAPINE [Suspect]
     Active Substance: QUETIAPINE
     Route: 048
  2. LORAZEPAM [Concomitant]
     Active Substance: LORAZEPAM
  3. FUROSEMIDE [Concomitant]
     Active Substance: FUROSEMIDE
  4. APIXABAN [Concomitant]
     Active Substance: APIXABAN
     Dosage: 5 MG/12H
  5. ATORVASTATIN [Concomitant]
     Active Substance: ATORVASTATIN
  6. METILDIGOXIN [Concomitant]
     Active Substance: METILDIGOXIN
     Dosage: 0.1 MG (1 TABLET 5 DAYS A WEEK AND A WEEKEND BREAK)
  7. PERINDOPRIL [Concomitant]
     Active Substance: PERINDOPRIL
  8. MIRTAZAPINE [Concomitant]
     Active Substance: MIRTAZAPINE
  9. ESOMEPRAZOLE [Concomitant]
     Active Substance: ESOMEPRAZOLE
  10. CARBAMAZEPINE [Concomitant]
     Active Substance: CARBAMAZEPINE
     Dosage: 200 MG/12H
  11. BISOPROLOL [Concomitant]
     Active Substance: BISOPROLOL
     Dosage: 10 MG/12H

REACTIONS (7)
  - Renal failure [Unknown]
  - Atrial fibrillation [Unknown]
  - Bradycardia [Unknown]
  - Diabetes mellitus inadequate control [Unknown]
  - Pain [Unknown]
  - Malaise [Unknown]
  - Troponin increased [Unknown]
